FAERS Safety Report 19648472 (Version 5)
Quarter: 2021Q4

REPORT INFORMATION
  Report Type: Report from Study
  Country: US (occurrence: US)
  Receive Date: 20210803
  Receipt Date: 20211116
  Transmission Date: 20220303
  Serious: No
  Sender: FDA-Public Use
  Company Number: NVSC2021US174560

PATIENT
  Sex: Female

DRUGS (3)
  1. ENTRESTO [Suspect]
     Active Substance: SACUBITRIL\VALSARTAN
     Indication: Product used for unknown indication
     Dosage: UNK, BID
     Route: 048
     Dates: start: 202107
  2. ENTRESTO [Suspect]
     Active Substance: SACUBITRIL\VALSARTAN
     Dosage: UNK
     Route: 065
  3. LASIX [Suspect]
     Active Substance: FUROSEMIDE
     Indication: Product used for unknown indication
     Dosage: UNK
     Route: 065

REACTIONS (11)
  - Arthralgia [Unknown]
  - Dyspnoea [Unknown]
  - Weight abnormal [Recovered/Resolved]
  - Joint swelling [Unknown]
  - Diarrhoea [Unknown]
  - Fluid retention [Unknown]
  - Feeling abnormal [Unknown]
  - Gait disturbance [Unknown]
  - Panic attack [Unknown]
  - Blood potassium increased [Unknown]
  - Blood pressure decreased [Unknown]
